FAERS Safety Report 5283291-7 (Version None)
Quarter: 2007Q2

REPORT INFORMATION
  Report Type: 
  Country: None (occurrence: None)
  Receive Date: 20070402
  Receipt Date: 20070330
  Transmission Date: 20071010
  Serious: Yes (Hospitalization)
  Sender: FDA-Public Use
  Company Number: FR-BRISTOL-MYERS SQUIBB COMPANY-13655196

PATIENT
  Age: 60 Year
  Sex: Female
  Weight: 68 kg

DRUGS (2)
  1. TAXOL [Suspect]
     Indication: BREAST CANCER
     Route: 042
  2. CARBOPLATIN [Suspect]

REACTIONS (1)
  - PAPILLOEDEMA [None]
